FAERS Safety Report 7154357-1 (Version None)
Quarter: 2010Q4

REPORT INFORMATION
  Report Type: 
  Country: None (occurrence: None)
  Receive Date: 20101213
  Receipt Date: 20101203
  Transmission Date: 20110411
  Serious: Yes (Other)
  Sender: FDA-Public Use
  Company Number: US-PFIZER INC-2010164027

PATIENT
  Sex: Female
  Weight: 77.098 kg

DRUGS (2)
  1. LYRICA [Suspect]
     Indication: BACK PAIN
     Dosage: 75 MG, 1X/DAY
     Route: 048
     Dates: start: 20101022, end: 20101112
  2. NORCO [Concomitant]
     Indication: PAIN
     Dosage: [HYDROCODONE BITARTRATE 10MG]/[ACETAMINOPHEN 325MG]; TWO TO THREE TIMES A DAY AS NEEDED

REACTIONS (3)
  - ASPHYXIA [None]
  - NIGHTMARE [None]
  - SOMNOLENCE [None]
